FAERS Safety Report 25453267 (Version 2)
Quarter: 2025Q2

REPORT INFORMATION
  Report Type: Spontaneous
  Country: BR (occurrence: BR)
  Receive Date: 20250618
  Receipt Date: 20250624
  Transmission Date: 20250717
  Serious: Yes (Congenital Anomaly, Other)
  Sender: ABBVIE
  Company Number: BR-ABBVIE-6334185

PATIENT

DRUGS (1)
  1. DIVALPROEX SODIUM [Suspect]
     Active Substance: DIVALPROEX SODIUM
     Indication: Product used for unknown indication
     Route: 064

REACTIONS (1)
  - Foetal anticonvulsant syndrome [Unknown]
